FAERS Safety Report 9288557 (Version 2)
Quarter: 2013Q3

REPORT INFORMATION
  Report Type: Spontaneous
  Country: GB (occurrence: GB)
  Receive Date: 20130514
  Receipt Date: 20130813
  Transmission Date: 20140515
  Serious: Yes (Life-Threatening, Hospitalization, Disabling, Other)
  Sender: FDA-Public Use
  Company Number: PHFR2013GB001656

PATIENT
  Age: 28 Year
  Sex: Male

DRUGS (5)
  1. CLOZARIL [Suspect]
     Indication: SCHIZOPHRENIA, PARANOID TYPE
     Dosage: 400, DAILY
     Route: 048
     Dates: start: 20061106
  2. CLONAZEPAM [Concomitant]
     Indication: ANXIETY
     Dosage: 10 MG, DAILY
     Route: 048
  3. LANSOPRAZOLE [Concomitant]
     Indication: GASTROOESOPHAGEAL REFLUX DISEASE
     Dosage: 15 MG, DAILY
     Route: 048
  4. CODEINE PHOSPHATE [Concomitant]
     Indication: PAIN
     Dosage: 120 MG, DAILY
     Route: 048
  5. PARACETAMOL [Concomitant]
     Indication: PAIN
     Dosage: 4 G, DAILY
     Route: 048

REACTIONS (3)
  - Loss of consciousness [Unknown]
  - Nerve injury [Not Recovered/Not Resolved]
  - Overdose [Recovered/Resolved with Sequelae]
